FAERS Safety Report 5824647-0 (Version None)
Quarter: 2008Q3

REPORT INFORMATION
  Report Type: 
  Country: None (occurrence: None)
  Receive Date: 20080728
  Receipt Date: 20080724
  Transmission Date: 20090109
  Serious: Yes (Hospitalization)
  Sender: FDA-Public Use
  Company Number: DE-EISAI MEDICAL RESEARCH-E2020-03128-SPO-DE

PATIENT
  Sex: Male

DRUGS (8)
  1. ARICEPT [Suspect]
     Indication: DRUG USE FOR UNKNOWN INDICATION
     Route: 048
     Dates: end: 20080616
  2. DIGOXIN [Concomitant]
     Route: 048
  3. TORSEMIDE [Concomitant]
     Route: 048
  4. VERAPAMIL [Concomitant]
     Route: 048
  5. EZETIMIBE 10 MG/SIMVASTATIN 20 MG [Concomitant]
     Route: 048
  6. TAMSULOSIN HCL [Concomitant]
     Route: 048
  7. LISINOPRIL [Concomitant]
     Route: 048
  8. PHENPROCOUMON [Concomitant]
     Route: 048

REACTIONS (3)
  - FALL [None]
  - PALLOR [None]
  - SYNCOPE [None]
